FAERS Safety Report 9095666 (Version 3)
Quarter: 2014Q3

REPORT INFORMATION
  Report Type: Spontaneous
  Country: US (occurrence: US)
  Receive Date: 20130219
  Receipt Date: 20140804
  Transmission Date: 20150326
  Serious: Yes (Hospitalization, Disabling, Other)
  Sender: FDA-Public Use
  Company Number: US-009507513-1302USA006725

PATIENT
  Sex: Female
  Weight: 108.84 kg

DRUGS (2)
  1. NUVARING [Suspect]
     Active Substance: ETHINYL ESTRADIOL\ETONOGESTREL
     Dosage: UNK
     Route: 067
     Dates: start: 20060506, end: 20060901
  2. NUVARING [Suspect]
     Active Substance: ETHINYL ESTRADIOL\ETONOGESTREL
     Indication: CONTRACEPTION
     Dosage: UNK
     Route: 067
     Dates: start: 20050609

REACTIONS (19)
  - Pulmonary embolism [Unknown]
  - Glucose tolerance impaired [Unknown]
  - Convulsion [Unknown]
  - Gastrooesophageal reflux disease [Unknown]
  - Iron deficiency anaemia [Unknown]
  - Pruritus allergic [Unknown]
  - Joint swelling [Unknown]
  - Chest pain [Recovering/Resolving]
  - Depression [Not Recovered/Not Resolved]
  - Sleep apnoea syndrome [Unknown]
  - Medication monitoring error [Unknown]
  - Menorrhagia [Not Recovered/Not Resolved]
  - Osteoarthritis [Unknown]
  - Pleuritic pain [Recovering/Resolving]
  - Constipation [Unknown]
  - Agoraphobia [Unknown]
  - Sensation of foreign body [Unknown]
  - Alopecia totalis [Unknown]
  - Carpal tunnel syndrome [Not Recovered/Not Resolved]

NARRATIVE: CASE EVENT DATE: 2006
